FAERS Safety Report 12530700 (Version 1)
Quarter: 2016Q3

REPORT INFORMATION
  Report Type: Spontaneous
  Country: US (occurrence: None)
  Receive Date: 20160705
  Receipt Date: 20160705
  Transmission Date: 20161109
  Serious: Yes (Hospitalization)
  Sender: FDA-Public Use
  Company Number: None

PATIENT
  Age: 42 Year
  Sex: Male
  Weight: 89.5 kg

DRUGS (1)
  1. WARFARIN [Suspect]
     Active Substance: WARFARIN
     Indication: DEEP VEIN THROMBOSIS
     Dosage: MG PO
     Route: 048
     Dates: start: 20160603

REACTIONS (4)
  - Hypophagia [None]
  - Vomiting [None]
  - Nausea [None]
  - International normalised ratio increased [None]

NARRATIVE: CASE EVENT DATE: 20160618
